FAERS Safety Report 4914038-9 (Version None)
Quarter: 2006Q1

REPORT INFORMATION
  Report Type: 
  Country: None (occurrence: None)
  Receive Date: 20060216
  Receipt Date: 20060124
  Transmission Date: 20060701
  Serious: Yes (Other)
  Sender: FDA-Public Use
  Company Number: JP-ROCHE-433912

PATIENT
  Age: 3 Year
  Sex: Female
  Weight: 14 kg

DRUGS (3)
  1. TAMIFLU [Suspect]
     Route: 048
     Dates: start: 20060106
  2. BIOFERMIN [Concomitant]
     Route: 048
     Dates: start: 20060106, end: 20060109
  3. ACETAMINOPHEN [Concomitant]
     Dosage: FORM REPORTED AS FINE GRANULE
     Route: 048
     Dates: start: 20060106, end: 20060107

REACTIONS (1)
  - MYOCLONUS [None]
